FAERS Safety Report 9017153 (Version 1)
Quarter: 2013Q1

REPORT INFORMATION
  Report Type: Spontaneous
  Country: FR (occurrence: FR)
  Receive Date: 20130117
  Receipt Date: 20130117
  Transmission Date: 20140127
  Serious: Yes (Hospitalization)
  Sender: FDA-Public Use
  Company Number: FR-MYLANLABS-2013S1000272

PATIENT
  Age: 48 Year
  Sex: Male

DRUGS (10)
  1. ARACYTINE [Suspect]
     Indication: B-CELL LYMPHOMA
     Route: 042
     Dates: end: 20100930
  2. ELDISINE [Suspect]
     Indication: B-CELL LYMPHOMA
     Route: 042
     Dates: start: 20100205, end: 20100327
  3. METHOTREXATE [Suspect]
     Indication: B-CELL LYMPHOMA
     Dates: start: 20100429, end: 20100514
  4. CARDIOXANE [Suspect]
     Indication: B-CELL LYMPHOMA
     Route: 042
     Dates: start: 20100205, end: 20100327
  5. DOXORUBICIN [Suspect]
     Indication: B-CELL LYMPHOMA
     Route: 042
     Dates: start: 20100205, end: 20100327
  6. ETOPOPHOS [Suspect]
     Indication: B-CELL LYMPHOMA
     Route: 042
     Dates: start: 20100531
  7. ENDOXAN [Suspect]
     Indication: B-CELL LYMPHOMA
     Route: 042
     Dates: start: 20100205, end: 20100327
  8. BLEOMYCINE [Suspect]
     Indication: B-CELL LYMPHOMA
     Route: 042
     Dates: start: 20100205, end: 20100323
  9. MABTHERA [Suspect]
     Indication: B-CELL LYMPHOMA
     Route: 042
     Dates: start: 20100531
  10. HOLOXAN [Suspect]
     Indication: B-CELL LYMPHOMA
     Route: 042
     Dates: start: 20100531

REACTIONS (1)
  - Acute myelomonocytic leukaemia [Not Recovered/Not Resolved]
